FAERS Safety Report 23989903 (Version 3)
Quarter: 2024Q4

REPORT INFORMATION
  Report Type: Spontaneous
  Country: US (occurrence: US)
  Receive Date: 20240619
  Receipt Date: 20241031
  Transmission Date: 20250115
  Serious: Yes (Death, Other)
  Sender: PFIZER
  Company Number: US-PFIZER INC-202400193990

PATIENT
  Age: 78 Year
  Sex: Female

DRUGS (2)
  1. IBRANCE [Suspect]
     Active Substance: PALBOCICLIB
     Dosage: 100MG 21 DAYS ON, 7 DAYS OFF
  2. IBRANCE [Suspect]
     Active Substance: PALBOCICLIB
     Dosage: TAKE 1 TABLET BY MOUTH DAILY ON DAYS 1-21 OF 28 DAY CYCLE
     Route: 048

REACTIONS (5)
  - Pneumonia [Fatal]
  - Dysphagia [Unknown]
  - Alopecia [Unknown]
  - Oesophageal disorder [Unknown]
  - Product dose omission issue [Unknown]
